FAERS Safety Report 9804051 (Version 2)
Quarter: 2014Q1

REPORT INFORMATION
  Report Type: Report from Study
  Country: IN (occurrence: IN)
  Receive Date: 20140108
  Receipt Date: 20140108
  Transmission Date: 20141002
  Serious: Yes (Hospitalization)
  Sender: FDA-Public Use
  Company Number: IN-ELI_LILLY_AND_COMPANY-IN201304007967

PATIENT
  Age: 34 Year
  Sex: Female
  Weight: 56.6 kg

DRUGS (6)
  1. GEMCITABINE HYDROCHLORIDE [Suspect]
     Indication: BREAST CANCER METASTATIC
     Dosage: 1460 MG, 1 IN 3 WEEKS
     Route: 042
     Dates: start: 20120612, end: 20131122
  2. GEMCITABINE HYDROCHLORIDE [Suspect]
     Dosage: 1000 MG, UNK
     Dates: start: 20130430
  3. CARBOPLATIN [Suspect]
     Indication: BREAST CANCER METASTATIC
     Dosage: 241 MG, EVERY 3 WEEKS
     Route: 042
     Dates: start: 20120612, end: 20130328
  4. BEVACIZUMAB [Suspect]
     Indication: BREAST CANCER METASTATIC
     Dosage: 795 MG, 1 IN 3 WEEKS
     Route: 042
     Dates: start: 20120612, end: 20130822
  5. AMLODIPINE [Concomitant]
     Dosage: 10 MG, UNK
     Dates: start: 20131007
  6. AMLODIPINE [Concomitant]
     Dosage: 10 MG, QD
     Dates: start: 20131213, end: 20131223

REACTIONS (4)
  - Febrile neutropenia [Recovered/Resolved]
  - Streptococcal infection [Recovered/Resolved]
  - Pericardial effusion [Unknown]
  - Dyspnoea [Recovering/Resolving]
